FAERS Safety Report 16033961 (Version 1)
Quarter: 2019Q1

REPORT INFORMATION
  Report Type: Spontaneous
  Country: US (occurrence: US)
  Receive Date: 20190205
  Receipt Date: 20190205
  Transmission Date: 20190418
  Serious: No
  Sender: FDA-Public Use
  Company Number: None

PATIENT
  Age: 71 Year
  Sex: Female

DRUGS (4)
  1. PANTOPRAZOLE [Concomitant]
     Active Substance: PANTOPRAZOLE
  2. FLONASE [Concomitant]
     Active Substance: FLUTICASONE PROPIONATE
  3. LEVOTHYROXINE. [Concomitant]
     Active Substance: LEVOTHYROXINE
  4. EXEMESTANE 25MG TAB [Suspect]
     Active Substance: EXEMESTANE
     Route: 048
     Dates: start: 201702

REACTIONS (2)
  - Flatulence [None]
  - Arthralgia [None]

NARRATIVE: CASE EVENT DATE: 20190205
